FAERS Safety Report 7054462-4 (Version None)
Quarter: 2010Q4

REPORT INFORMATION
  Report Type: 
  Country: None (occurrence: None)
  Receive Date: 20101020
  Receipt Date: 20101013
  Transmission Date: 20110411
  Serious: Yes (Other)
  Sender: FDA-Public Use
  Company Number: US-US-EMD SERONO, INC.-7022059

PATIENT
  Sex: Male
  Weight: 23 kg

DRUGS (4)
  1. SAIZEN [Suspect]
     Indication: SMALL FOR DATES BABY
     Dates: start: 20100501, end: 20100701
  2. UNSPECIFIED BLOOD PRESSURE MEDICATIONS [Concomitant]
     Indication: HYPERTENSION
  3. INTUNIV [Concomitant]
     Indication: HYPERTENSION
     Dates: end: 20100101
  4. TENEX [Concomitant]
     Indication: HYPERTENSION
     Dates: end: 20100101

REACTIONS (1)
  - PHAEOCHROMOCYTOMA [None]
